FAERS Safety Report 18246037 (Version 2)
Quarter: 2020Q4

REPORT INFORMATION
  Report Type: Report from Study
  Country: US (occurrence: US)
  Receive Date: 20200909
  Receipt Date: 20201228
  Transmission Date: 20210113
  Serious: Yes (Other)
  Sender: FDA-Public Use
  Company Number: US-ASTRAZENECA-2020SF13118

PATIENT
  Age: 63 Year
  Sex: Female

DRUGS (25)
  1. PLAQUENIL [Concomitant]
     Active Substance: HYDROXYCHLOROQUINE SULFATE
  2. PROVENTIL [Concomitant]
     Active Substance: ALBUTEROL
  3. VITAMIN D [Concomitant]
     Active Substance: VITAMIN D NOS
  4. ALDACTONE [Concomitant]
     Active Substance: SPIRONOLACTONE
  5. HYDROCHLOROTHIAZIDE. [Concomitant]
     Active Substance: HYDROCHLOROTHIAZIDE
  6. MIRALAX [Concomitant]
     Active Substance: POLYETHYLENE GLYCOL 3350
  7. PREDNISONE. [Concomitant]
     Active Substance: PREDNISONE
  8. CLARITIN [Concomitant]
     Active Substance: LORATADINE
  9. FUROSEMIDE. [Concomitant]
     Active Substance: FUROSEMIDE
  10. OMEGA 3 [Concomitant]
     Active Substance: OMEGA-3 FATTY ACIDS
  11. POTASSIUM [Concomitant]
     Active Substance: POTASSIUM
  12. SPIRIVA [Concomitant]
     Active Substance: TIOTROPIUM BROMIDE MONOHYDRATE
  13. VALTREX [Concomitant]
     Active Substance: VALACYCLOVIR HYDROCHLORIDE
  14. VITAMIN C [Concomitant]
     Active Substance: ASCORBIC ACID
  15. ALBUTEROL. [Concomitant]
     Active Substance: ALBUTEROL
  16. ASPIRIN 81 [Concomitant]
     Active Substance: ASPIRIN
  17. FOSAMAX [Concomitant]
     Active Substance: ALENDRONATE SODIUM
  18. COLACE [Concomitant]
     Active Substance: DOCUSATE SODIUM
  19. MAGNESIUM CARBONATE [Concomitant]
     Active Substance: MAGNESIUM CARBONATE
  20. XOLAIR [Concomitant]
     Active Substance: OMALIZUMAB
  21. COLCHICINE. [Concomitant]
     Active Substance: COLCHICINE
  22. VITAMIN B COMPLEX [Concomitant]
     Active Substance: CYANOCOBALAMIN\DEXPANTHENOL\NIACINAMIDE\PYRIDOXINE HYDROCHLORIDE\RIBOFLAVIN 5^-PHOSPHATE SODIUM\THIAMINE HYDROCHLORIDE\VITAMIN B COMPLEX
  23. FASENRA [Suspect]
     Active Substance: BENRALIZUMAB
     Indication: ASTHMA
     Route: 058
  24. MYLANTA [Concomitant]
     Active Substance: ALUMINUM HYDROXIDE\DIMETHICONE\MAGNESIUM HYDROXIDE
  25. SINGULAIR [Concomitant]
     Active Substance: MONTELUKAST SODIUM

REACTIONS (5)
  - Asthenia [Unknown]
  - Somnolence [Unknown]
  - Cough [Unknown]
  - Seizure [Unknown]
  - Arthralgia [Unknown]
